FAERS Safety Report 5034203-2 (Version None)
Quarter: 2006Q2

REPORT INFORMATION
  Report Type: 
  Country: None (occurrence: None)
  Receive Date: 20060626
  Receipt Date: 20060510
  Transmission Date: 20061013
  Serious: Yes (Death, Life-Threatening, Hospitalization)
  Sender: FDA-Public Use
  Company Number: J200600007

PATIENT
  Age: 47 Year
  Sex: Female

DRUGS (3)
  1. AMOXICILLIN [Suspect]
     Indication: HELICOBACTER INFECTION
     Dosage: 750MG TWICE PER DAY
     Route: 048
     Dates: start: 20051205
  2. CLARITHROMYCIN [Suspect]
     Indication: HELICOBACTER INFECTION
     Dosage: 400MG TWICE PER DAY
     Route: 048
     Dates: start: 20051205, end: 20051212
  3. TAKEPRON [Concomitant]
     Indication: HELICOBACTER INFECTION
     Dosage: 30MG VARIABLE DOSE
     Route: 048
     Dates: start: 20051128, end: 20051212

REACTIONS (16)
  - ABDOMINAL PAIN UPPER [None]
  - ALANINE AMINOTRANSFERASE INCREASED [None]
  - ANOREXIA [None]
  - ASPARTATE AMINOTRANSFERASE INCREASED [None]
  - BILIRUBIN CONJUGATED INCREASED [None]
  - BLOOD ALKALINE PHOSPHATASE INCREASED [None]
  - BLOOD BILIRUBIN INCREASED [None]
  - BLOOD CHOLESTEROL INCREASED [None]
  - BLOOD GLUCOSE INCREASED [None]
  - BLOOD LACTATE DEHYDROGENASE INCREASED [None]
  - DEATH [None]
  - GAMMA-GLUTAMYLTRANSFERASE INCREASED [None]
  - HEPATIC FUNCTION ABNORMAL [None]
  - JAUNDICE [None]
  - JAUNDICE CHOLESTATIC [None]
  - SKIN DISCOLOURATION [None]
